FAERS Safety Report 8071732-1 (Version None)
Quarter: 2012Q1

REPORT INFORMATION
  Report Type: 
  Country: None (occurrence: None)
  Receive Date: 20120125
  Receipt Date: 20120119
  Transmission Date: 20120608
  Serious: Yes (Hospitalization, Disabling)
  Sender: FDA-Public Use
  Company Number: US-MERCK-1110USA01113

PATIENT
  Age: 54 Year
  Sex: Female

DRUGS (1)
  1. FOSAMAX [Suspect]
     Indication: OSTEOPOROSIS
     Route: 048
     Dates: start: 19970101

REACTIONS (13)
  - ARTHROPATHY [None]
  - DEPRESSION [None]
  - FEMUR FRACTURE [None]
  - HYPERTENSION [None]
  - MIGRAINE [None]
  - CARDIAC FAILURE CONGESTIVE [None]
  - TOOTH ABSCESS [None]
  - BLOOD CHOLESTEROL INCREASED [None]
  - SPINAL COLUMN STENOSIS [None]
  - ASTHMA [None]
  - LOW TURNOVER OSTEOPATHY [None]
  - UTERINE DISORDER [None]
  - FALL [None]
